FAERS Safety Report 6806478-8 (Version None)
Quarter: 2010Q2

REPORT INFORMATION
  Report Type: 
  Country: None (occurrence: None)
  Receive Date: 20100629
  Receipt Date: 20080310
  Transmission Date: 20101027
  Serious: No
  Sender: FDA-Public Use
  Company Number: US-PFIZER INC-2008022154

PATIENT
  Sex: Female
  Weight: 77.11 kg

DRUGS (7)
  1. TIKOSYN [Suspect]
     Indication: ATRIAL FIBRILLATION
  2. PROTONIX [Concomitant]
     Indication: GASTROOESOPHAGEAL REFLUX DISEASE
  3. NEXIUM [Concomitant]
     Indication: GASTROOESOPHAGEAL REFLUX DISEASE
  4. VALSARTAN [Concomitant]
  5. TOPROL-XL [Concomitant]
  6. WARFARIN SODIUM [Concomitant]
  7. SIMVASTATIN [Concomitant]

REACTIONS (1)
  - BLOOD PRESSURE INCREASED [None]
